FAERS Safety Report 4597498-5 (Version None)
Quarter: 2005Q1

REPORT INFORMATION
  Report Type: 
  Country: None (occurrence: None)
  Receive Date: 20050303
  Receipt Date: 20050222
  Transmission Date: 20050727
  Serious: Yes (Hospitalization)
  Sender: FDA-Public Use
  Company Number: JP-ROCHE-396570

PATIENT
  Age: 39 Year
  Sex: Male

DRUGS (1)
  1. VESANOID [Suspect]
     Route: 048
     Dates: start: 20020501, end: 20020601

REACTIONS (1)
  - MYELODYSPLASTIC SYNDROME [None]
